FAERS Safety Report 24572319 (Version 1)
Quarter: 2024Q4

REPORT INFORMATION
  Report Type: Spontaneous
  Country: US (occurrence: None)
  Receive Date: 20241101
  Receipt Date: 20241101
  Transmission Date: 20250114
  Serious: Yes (Hospitalization)
  Sender: Public
  Company Number: None

PATIENT
  Sex: Female

DRUGS (1)
  1. OPSUMIT [Suspect]
     Active Substance: MACITENTAN
     Indication: Pulmonary arterial hypertension
     Dates: start: 202410

REACTIONS (4)
  - Hip fracture [None]
  - Blood pressure decreased [None]
  - Oxygen saturation decreased [None]
  - Blood glucose decreased [None]
